FAERS Safety Report 11739723 (Version 1)
Quarter: 2015Q4

REPORT INFORMATION
  Report Type: Spontaneous
  Country: DE (occurrence: DE)
  Receive Date: 20151113
  Receipt Date: 20151113
  Transmission Date: 20160304
  Serious: Yes (Other)
  Sender: FDA-Public Use
  Company Number: DE-SUNOVION-2015SUN000856

PATIENT

DRUGS (1)
  1. ALVESCO [Suspect]
     Active Substance: CICLESONIDE
     Indication: COUGH
     Dosage: UNK
     Route: 065
     Dates: start: 20151103, end: 20151103

REACTIONS (5)
  - Fear of death [Unknown]
  - Blood pressure increased [Unknown]
  - Off label use [Unknown]
  - Palpitations [Unknown]
  - Dyspnoea [Unknown]

NARRATIVE: CASE EVENT DATE: 20151103
